FAERS Safety Report 8824248 (Version 2)
Quarter: 2013Q2

REPORT INFORMATION
  Report Type: Spontaneous
  Country: US (occurrence: US)
  Receive Date: 20121004
  Receipt Date: 20130516
  Transmission Date: 20140414
  Serious: No
  Sender: FDA-Public Use
  Company Number: US-009507513-1209USA010601

PATIENT
  Age: 51 Year
  Sex: Male
  Weight: 87.75 kg

DRUGS (4)
  1. PEGINTRON [Suspect]
     Indication: HEPATITIS C
     Dosage: 150 MICROGRAM, QW
     Route: 058
     Dates: start: 20120917, end: 20121005
  2. REBETOL [Suspect]
     Indication: RASH
     Dosage: UNK
     Route: 048
     Dates: start: 20120913, end: 20121005
  3. XANAX [Concomitant]
  4. ZANTAC [Concomitant]

REACTIONS (5)
  - Rash pruritic [Recovered/Resolved]
  - Injection site erythema [Recovering/Resolving]
  - Dizziness [Recovering/Resolving]
  - Product quality issue [Unknown]
  - Accidental exposure to product [Unknown]
